FAERS Safety Report 4407340-0 (Version None)
Quarter: 2004Q3

REPORT INFORMATION
  Report Type: 
  Country: None (occurrence: None)
  Receive Date: 20040721
  Receipt Date: 20040706
  Transmission Date: 20050211
  Serious: Yes (Hospitalization)
  Sender: FDA-Public Use
  Company Number: USA040772004

PATIENT
  Age: 53 Year
  Sex: Male

DRUGS (4)
  1. STRATTERA [Suspect]
  2. EFFEXOR [Concomitant]
  3. DOXEPIN HCL [Concomitant]
  4. ALLEGRA [Concomitant]

REACTIONS (3)
  - ATRIAL FIBRILLATION [None]
  - CONDUCTION DISORDER [None]
  - VENTRICULAR TACHYCARDIA [None]
